FAERS Safety Report 21559330 (Version 2)
Quarter: 2023Q2

REPORT INFORMATION
  Report Type: Other
  Country: CA (occurrence: CA)
  Receive Date: 20221107
  Receipt Date: 20230411
  Transmission Date: 20230722
  Serious: Yes (Other)
  Sender: FDA-Public Use
  Company Number: CA-TOLMAR, INC.-22CA037091

PATIENT
  Age: 77 Year
  Sex: Male

DRUGS (3)
  1. ELIGARD [Suspect]
     Active Substance: LEUPROLIDE ACETATE
     Indication: Prostate cancer
     Dosage: 22.5 MILLIGRAM, Q 3 MONTH
     Route: 058
     Dates: start: 20220430
  2. ELIGARD [Suspect]
     Active Substance: LEUPROLIDE ACETATE
     Dosage: 22.5 MILLIGRAM, Q 3 MONTH
     Route: 058
     Dates: start: 20221013
  3. ELIGARD [Suspect]
     Active Substance: LEUPROLIDE ACETATE
     Dosage: 22.5 MILLIGRAM, Q 3 MONTH
     Route: 058
     Dates: start: 20230329

REACTIONS (8)
  - Erectile dysfunction [Unknown]
  - Diarrhoea [Unknown]
  - Injection site haemorrhage [Recovered/Resolved]
  - Frequent bowel movements [Unknown]
  - Increased appetite [Unknown]
  - Hot flush [Not Recovered/Not Resolved]
  - Loss of libido [Unknown]
  - Weight increased [Unknown]

NARRATIVE: CASE EVENT DATE: 20221013
